FAERS Safety Report 20606982 (Version 2)
Quarter: 2022Q2

REPORT INFORMATION
  Report Type: Spontaneous
  Country: US (occurrence: US)
  Receive Date: 20220317
  Receipt Date: 20220414
  Transmission Date: 20220721
  Serious: No
  Sender: FDA-Public Use
  Company Number: US-ELI_LILLY_AND_COMPANY-US202203005450

PATIENT
  Sex: Female
  Weight: 50.794 kg

DRUGS (2)
  1. ETESEVIMAB [Suspect]
     Active Substance: ETESEVIMAB
     Indication: COVID-19
     Dosage: UNK UNK, SINGLE
     Route: 065
  2. BAMLANIVIMAB [Suspect]
     Active Substance: BAMLANIVIMAB
     Indication: COVID-19
     Dosage: UNK UNK, SINGLE
     Route: 065

REACTIONS (18)
  - Heart rate increased [Unknown]
  - Rash [Unknown]
  - Pruritus [Unknown]
  - Skin lesion [Unknown]
  - Pain [Unknown]
  - Hot flush [Unknown]
  - Alopecia [Unknown]
  - Pyrexia [Recovered/Resolved]
  - Thyroid hormones increased [Unknown]
  - Hyperhidrosis [Unknown]
  - Fatigue [Unknown]
  - Bradyphrenia [Unknown]
  - Cough [Unknown]
  - Illness [Unknown]
  - Malaise [Unknown]
  - Feeling abnormal [Unknown]
  - Weight decreased [Unknown]
  - Scar [Unknown]
